FAERS Safety Report 21265408 (Version 1)
Quarter: 2022Q3

REPORT INFORMATION
  Report Type: Other
  Country: CA (occurrence: CA)
  Receive Date: 20220829
  Receipt Date: 20220829
  Transmission Date: 20221027
  Serious: Yes (Other)
  Sender: FDA-Public Use
  Company Number: CA-LANTHEUS-LMI-2022-00993

PATIENT
  Age: 59 Year
  Sex: Male

DRUGS (2)
  1. GALLIUM [Suspect]
     Active Substance: GALLIUM CITRATE GA-67
     Indication: Diagnostic procedure
     Dosage: 6.0 MILLICURIE
     Route: 042
  2. TECHNETIUM TC-99M [Concomitant]
     Active Substance: TECHNETIUM TC-99M
     Indication: Product used for unknown indication

REACTIONS (2)
  - Acne [Recovered/Resolved]
  - Rash [Recovered/Resolved]
